FAERS Safety Report 15342350 (Version 1)
Quarter: 2018Q3

REPORT INFORMATION
  Report Type: Spontaneous
  Country: DK (occurrence: DK)
  Receive Date: 20180902
  Receipt Date: 20180902
  Transmission Date: 20181010
  Serious: Yes (Hospitalization)
  Sender: FDA-Public Use
  Company Number: PHHY2018DK085494

PATIENT
  Age: 73 Year
  Sex: Female

DRUGS (17)
  1. NITROLINGUAL [Concomitant]
     Active Substance: NITROGLYCERIN
     Indication: CHEST PAIN
     Dosage: DOSIS: 1?2 PUST EFTER BEHOV.STYRKE: 0,4 MG/DOSIS.
     Route: 060
     Dates: start: 20180111
  2. UNIKALK MEGA [Concomitant]
     Indication: MINERAL SUPPLEMENTATION
     Dosage: 2 ?G/L, QD
     Route: 048
     Dates: start: 20170203
  3. METFORMIN [Suspect]
     Active Substance: METFORMIN HYDROCHLORIDE
     Indication: TYPE 2 DIABETES MELLITUS
     Dosage: 2000 MG, QD
     Route: 048
     Dates: end: 20180725
  4. VENTOLINE [Concomitant]
     Active Substance: ALBUTEROL
     Indication: ASTHMA
     Dosage: 2 ?G/L, UNK(DOSIS: 1 PUST EFTER BEHOV. H?JST 4 GANGE DAGLIGTSTYRKE: 0,1 MG/DOSIS)
     Route: 055
     Dates: start: 20130226
  5. BURINEX [Concomitant]
     Active Substance: BUMETANIDE
     Indication: DIURETIC THERAPY
     Dosage: 3 MG, QD
     Route: 048
     Dates: start: 20170205
  6. METOPROLOL SUCCINATE. [Concomitant]
     Active Substance: METOPROLOL SUCCINATE
     Indication: CARDIAC FAILURE
     Dosage: 25 MG, QD
     Route: 048
     Dates: start: 20180313
  7. PANTOPRAZOLE [Concomitant]
     Active Substance: PANTOPRAZOLE
     Indication: GASTROOESOPHAGEAL REFLUX DISEASE
     Dosage: 40 MG, QD
     Route: 048
     Dates: start: 20170914
  8. THEO?DUR [Concomitant]
     Active Substance: THEOPHYLLINE ANHYDROUS
     Indication: ASTHMA
     Dosage: 400 MG, QD
     Route: 048
     Dates: start: 20170523
  9. SPIRIVA [Concomitant]
     Active Substance: TIOTROPIUM BROMIDE MONOHYDRATE
     Indication: CHRONIC OBSTRUCTIVE PULMONARY DISEASE
     Dosage: DOSIS: 2 PUST MORGENSTYRKE: 2,5 MIKROGRAM
     Route: 055
  10. KALIUMKLORID [Concomitant]
     Indication: HYPOKALAEMIA
     Dosage: 750 MG, QD
     Route: 048
     Dates: start: 20170205, end: 20180111
  11. XARELTO [Concomitant]
     Active Substance: RIVAROXABAN
     Indication: THROMBOSIS PROPHYLAXIS
     Dosage: 20 MG, QD
     Route: 048
     Dates: start: 20170203
  12. INNOVAIR [Concomitant]
     Active Substance: BECLOMETHASONE DIPROPIONATE\FORMOTEROL
     Indication: CHRONIC OBSTRUCTIVE PULMONARY DISEASE
     Dosage: 4 ?G/L, QD (STYRKE: 100 + 6 MIKROGRAM/DOSIS)
     Route: 055
     Dates: start: 20170309
  13. BETOLVEX [Concomitant]
     Active Substance: CYANOCOBALAMIN
     Indication: VITAMIN B12 DEFICIENCY
     Dosage: 1 MG, QD
     Route: 048
     Dates: start: 20141008
  14. OCULAC [Concomitant]
     Indication: DRY EYE
     Dosage: DOSIS: 1 DR?BE EFTER BEHOV. H?JST 3 GANGE DAGLIGT.STYRKE: 50 MG/ML.
     Route: 050
     Dates: start: 20141023
  15. PRAMIPEXOLE. [Concomitant]
     Active Substance: PRAMIPEXOLE
     Indication: RESTLESS LEGS SYNDROME
     Dosage: 176 MG, QD
     Route: 048
     Dates: start: 20180129
  16. ONDANSETRON [Concomitant]
     Active Substance: ONDANSETRON
     Indication: NAUSEA
     Dosage: DOSIS: 1 TABLET OP TIL 3 GANGE DAGLIGTSTYRKE: 4 MG.
     Route: 048
     Dates: start: 20170914
  17. VERAPAMIL [Concomitant]
     Active Substance: VERAPAMIL HYDROCHLORIDE
     Indication: HEART RATE IRREGULAR
     Dosage: 480 MG, QD (STYRKE: 240 MG.)
     Route: 048
     Dates: start: 20170208

REACTIONS (3)
  - Lactic acidosis [Recovered/Resolved]
  - Hyperglycaemia [Recovered/Resolved]
  - Vomiting [Recovered/Resolved]

NARRATIVE: CASE EVENT DATE: 201807
